FAERS Safety Report 17437472 (Version 2)
Quarter: 2020Q2

REPORT INFORMATION
  Report Type: Spontaneous
  Country: US (occurrence: US)
  Receive Date: 20200219
  Receipt Date: 20200515
  Transmission Date: 20200713
  Serious: Yes (Other)
  Sender: FDA-Public Use
  Company Number: US-ARBOR PHARMACEUTICALS, LLC-US-2019ARB001624

PATIENT
  Age: 67 Year
  Sex: Male

DRUGS (1)
  1. TESTOSTERONE CYPIONATE. [Suspect]
     Active Substance: TESTOSTERONE CYPIONATE
     Indication: BLOOD TESTOSTERONE DECREASED
     Dosage: 1 ML, SINGLE, EVERY 14 DAYS

REACTIONS (9)
  - Behavioural addiction [Unknown]
  - Partner stress [Unknown]
  - Dependence [Not Recovered/Not Resolved]
  - Emotional distress [Not Recovered/Not Resolved]
  - Withdrawal syndrome [Unknown]
  - Libido increased [Unknown]
  - Excessive masturbation [Unknown]
  - Penile curvature [Unknown]
  - Penile size reduced [Unknown]
